FAERS Safety Report 6905132-1 (Version None)
Quarter: 2010Q3

REPORT INFORMATION
  Report Type: 
  Country: None (occurrence: None)
  Receive Date: 20100804
  Receipt Date: 20091008
  Transmission Date: 20110219
  Serious: Yes (Hospitalization)
  Sender: FDA-Public Use
  Company Number: US-PFIZER INC-2009222347

PATIENT
  Sex: Male
  Weight: 97.506 kg

DRUGS (13)
  1. LYRICA [Suspect]
     Indication: NEURALGIA
     Dosage: FREQUENCY: EVERY DAY;
     Route: 048
     Dates: start: 20060101
  2. TRILEPTAL [Concomitant]
     Dosage: UNK
  3. ULTRAM [Concomitant]
     Dosage: UNK
  4. PREVACID [Concomitant]
     Dosage: UNK
  5. TAMSULOSIN [Concomitant]
     Dosage: UNK
  6. CATAPRES [Concomitant]
     Dosage: UNK
  7. SKELAXIN [Concomitant]
     Dosage: UNK
  8. AMLODIPINE [Concomitant]
     Dosage: UNK
  9. NEBIVOLOL [Concomitant]
     Dosage: UNK
  10. ZYRTEC [Concomitant]
     Dosage: UNK
  11. VICODIN [Concomitant]
     Dosage: UNK
  12. PERCOCET [Concomitant]
     Dosage: UNK
  13. LIDOCAINE [Concomitant]
     Dosage: UNK

REACTIONS (3)
  - BLOOD TESTOSTERONE DECREASED [None]
  - HOT FLUSH [None]
  - MUSCLE SPASMS [None]
